FAERS Safety Report 23487210 (Version 1)
Quarter: 2024Q1

REPORT INFORMATION
  Report Type: Spontaneous
  Country: US (occurrence: None)
  Receive Date: 20240206
  Receipt Date: 20240206
  Transmission Date: 20240409
  Serious: No
  Sender: FDA-Public Use
  Company Number: US-USAntibiotics-000251

PATIENT
  Sex: Female

DRUGS (32)
  1. AUGMENTIN [Suspect]
     Active Substance: AMOXICILLIN\CLAVULANATE POTASSIUM
     Indication: Product used for unknown indication
  2. CIPROFLOXACIN [Suspect]
     Active Substance: CIPROFLOXACIN
     Indication: Product used for unknown indication
  3. ERYTHROMYCIN [Suspect]
     Active Substance: ERYTHROMYCIN
     Indication: Product used for unknown indication
  4. PENICILLIN [Suspect]
     Active Substance: PENICILLIN
     Indication: Product used for unknown indication
  5. ALPHAGAN P [Concomitant]
     Active Substance: BRIMONIDINE TARTRATE
     Indication: Product used for unknown indication
  6. ACETAMINOPHEN [Concomitant]
     Active Substance: ACETAMINOPHEN
     Indication: Pain
     Dosage: 650 MG TAKE 2 TABLETS BY MOUTH EVERY 6 HRS
  7. VITAMIN C [Concomitant]
     Active Substance: ASCORBIC ACID
     Indication: Product used for unknown indication
     Dosage: 500 MG TAKE 1 TABLET BY MOUTH 1 TIME EACH DAY
  8. AZITHROMYCIN [Concomitant]
     Active Substance: AZITHROMYCIN
     Indication: Product used for unknown indication
     Dosage: 1 % 1 DROP IN THE MORNING AND 1 DROP BEFORE BEDTIME
  9. BIOTIN [Concomitant]
     Active Substance: BIOTIN
     Indication: Product used for unknown indication
     Dosage: 10000 MICROGRAMS 1 TIME EACH DAY AT THE SAME TIME
  10. BUDESONIDE [Concomitant]
     Active Substance: BUDESONIDE
     Indication: Product used for unknown indication
     Dosage: 3 MG TAKE 1 CAPSULE BY MOUTH AT BED TIME
  11. CALCIPOTRIENE [Concomitant]
     Active Substance: CALCIPOTRIENE
     Indication: Actinic keratosis
     Dosage: 0.005% APPLY TOPICALLY 2 TIMES A DAY FOR 4 DAYS, AS NEEDED FOR ACTINIC KARATOSES
  12. CHOLECALCIFEROL [Concomitant]
     Active Substance: CHOLECALCIFEROL
     Indication: Product used for unknown indication
     Dosage: 25 MCG TAKE 5 TABLETS BY MOUTH 1 TIME EACH DAY IN THE MORNING
  13. CINNAMON [Concomitant]
     Active Substance: CINNAMON
     Indication: Product used for unknown indication
     Dosage: TAKE 1 TABLET BY MOUTH 2 TIMES A DAY
  14. COENZYME Q10 [Concomitant]
     Active Substance: DIETARY SUPPLEMENT\UBIDECARENONE
     Indication: Product used for unknown indication
     Dosage: 100 MG TAKE 1 TABLET BY MOUTH 1 TIME EACH DAY WITH DINNER
  15. CYANOCOBALAMIN [Concomitant]
     Active Substance: CYANOCOBALAMIN
     Indication: Product used for unknown indication
     Dosage: 1000 MCG TAKE 3 TABLETS BY MOUTH 1 TIME EACH DAY. AT LUNCH
  16. DEXLANSOPRAZOLE [Concomitant]
     Active Substance: DEXLANSOPRAZOLE
     Indication: Product used for unknown indication
     Dosage: 60 MG TAKE 1 CAPSULE BY MOUTH AT BED TIME. DO NOT CRUSH OR CHEW
  17. DOCUSATE SODIUM [Concomitant]
     Active Substance: DOCUSATE SODIUM
     Indication: Product used for unknown indication
     Dosage: 100 MG TAKE 1 CAPSULE BY MOUTH IN THE MORNING AND 1 CAPSULE BEFORE BEDTIME
  18. DULOXETINE [Concomitant]
     Active Substance: DULOXETINE
     Indication: Product used for unknown indication
     Dosage: 60 MG TAKE 1 CAPSULE BY MOUTH EVERY DAY
  19. JARDIANCE [Concomitant]
     Active Substance: EMPAGLIFLOZIN
     Indication: Product used for unknown indication
     Dosage: 25 MG TAKE 1 TABLET BY MOUTH 1 TIME EACH DAY
  20. ESTRADIOL [Concomitant]
     Active Substance: ESTRADIOL
     Indication: Product used for unknown indication
     Dosage: 0.075 MG/24 HR APPLY ONE PATCH ONTO THE SKIN WEEKLY AND CHANGE ONCE A WEEK
  21. FENOFIBRATE [Concomitant]
     Active Substance: FENOFIBRATE
     Indication: Product used for unknown indication
     Dosage: 145 MG TAKE 1 TABLET BY MOUTH EVERY NIGHT
  22. ICOSAPENT [Concomitant]
     Active Substance: ICOSAPENT
     Indication: Product used for unknown indication
     Dosage: 1 GRAM TAKE 2 CAPSULES BY MOUTH IN THE MORNING AND AT BED TIME
  23. LACTULOSE [Concomitant]
     Active Substance: LACTULOSE
     Indication: Product used for unknown indication
     Dosage: 10 GM/15ML, TAKE 45 ML (30G TOTAL) BY MOUTH IN THE MORNING AND 45 ML (30G TOTAL) BEFORE BED TIME
  24. UNITHROID [Concomitant]
     Active Substance: LEVOTHYROXINE SODIUM
     Indication: Product used for unknown indication
     Dosage: 50 MICROGRAMS; TAKE 1 TABLET BY MOUTH 1 TIME EACH DAY IN THE MORNING AT 06:00
  25. LINZESS [Concomitant]
     Active Substance: LINACLOTIDE
     Indication: Product used for unknown indication
     Dosage: 145 MICROGRAMS; TAKE 1 CAPSULE BY MOUTH 1 TIME EACH DAY
  26. LORATADINE [Concomitant]
     Active Substance: LORATADINE
     Indication: Product used for unknown indication
     Dosage: 10 MG; TAKE 1 TABLET BY MOUTH 1 TIME EACH DAY IN THE MORNING
  27. METFORMIN [Concomitant]
     Active Substance: METFORMIN HYDROCHLORIDE
     Indication: Product used for unknown indication
     Dosage: 500 MG; TAKE 1 TABLET BY MOUTH IN THE MORNING AND 1 TABLET IN THE EVENING. TAKE WITH MEALS
  28. DIETARY SUPPLEMENT\HERBALS [Concomitant]
     Active Substance: DIETARY SUPPLEMENT\HERBALS
     Indication: Product used for unknown indication
     Dosage: TAKE 1 TABLET BY MOUTH 2 TIMES A DAY AT LUNCH TIME AND SUPPER TIME
  29. POTASSIUM CHLORIDE [Concomitant]
     Active Substance: POTASSIUM CHLORIDE
     Indication: Product used for unknown indication
     Dosage: 20MEQ; TAKE 1 TABLET BY MOUTH 1 TIME EACH DAY
  30. PSEUDOEPHEDRINE [Concomitant]
     Active Substance: PSEUDOEPHEDRINE
     Indication: Product used for unknown indication
     Dosage: 30 MG; TAKE 1 TABLET BY MOUTH 1 TIME EACH DAY IF NEEDED FOR CONGESTION
  31. ROSUVASTATIN [Concomitant]
     Active Substance: ROSUVASTATIN
     Indication: Product used for unknown indication
     Dosage: 20 MG; TAKE 1 TABLET BY MOUTH 1 TIME EACH DAY IN THE EVENING
  32. ALPHA TOCOPHEROL [Concomitant]
     Indication: Product used for unknown indication
     Dosage: 180 MG; TAKE 1 CAPSULE BY MOUTH 1 TIME EACH DAY IN THE MORNING

REACTIONS (1)
  - Rash [Unknown]
